FAERS Safety Report 13149229 (Version 2)
Quarter: 2017Q1

REPORT INFORMATION
  Report Type: Spontaneous
  Country: US (occurrence: US)
  Receive Date: 20170125
  Receipt Date: 20170208
  Transmission Date: 20170428
  Serious: Yes (Death, Hospitalization, Other)
  Sender: FDA-Public Use
  Company Number: US-SMITH AND NEPHEW, INC-2017SMT00035

PATIENT
  Age: 52 Year
  Sex: Male
  Weight: 126.98 kg

DRUGS (1)
  1. REGRANEX [Suspect]
     Active Substance: BECAPLERMIN
     Indication: DIABETIC ULCER
     Dosage: UNK UNK, 1X/DAY (ON FOR 12 HOURS, OFF FOR 12 HOURS)
     Route: 061
     Dates: start: 201612

REACTIONS (4)
  - Oesophageal ulcer [Not Recovered/Not Resolved]
  - Oesophageal haemorrhage [Not Recovered/Not Resolved]
  - Varicose vein [Not Recovered/Not Resolved]
  - Death [Fatal]

NARRATIVE: CASE EVENT DATE: 201701
